FAERS Safety Report 20122986 (Version 5)
Quarter: 2022Q1

REPORT INFORMATION
  Report Type: Report from Study
  Country: US (occurrence: US)
  Receive Date: 20211129
  Receipt Date: 20220127
  Transmission Date: 20220423
  Serious: Yes (Other)
  Sender: FDA-Public Use
  Company Number: US-SANOFI-00864006

PATIENT
  Age: 61 Year
  Sex: Male

DRUGS (5)
  1. TERIFLUNOMIDE [Suspect]
     Active Substance: TERIFLUNOMIDE
     Indication: Relapsing multiple sclerosis
     Dosage: 14 MG, QD
     Route: 048
     Dates: start: 20201221, end: 202102
  2. TERIFLUNOMIDE [Suspect]
     Active Substance: TERIFLUNOMIDE
     Dosage: 14 MG, QD
     Route: 048
     Dates: start: 20211221
  3. ASPIRIN [Suspect]
     Active Substance: ASPIRIN
     Dosage: UNK UNK, QD
     Dates: end: 202110
  4. TECFIDERA [Suspect]
     Active Substance: DIMETHYL FUMARATE
     Indication: Relapsing multiple sclerosis
     Dosage: UNK, BID
     Dates: start: 2017, end: 202006
  5. COVID-19 VACCINE NOS [Suspect]
     Active Substance: COVID-19 VACCINE NOS
     Indication: Immunisation
     Dosage: UNK

REACTIONS (6)
  - Progressive multifocal leukoencephalopathy [Unknown]
  - COVID-19 [Recovering/Resolving]
  - Haemorrhage [Unknown]
  - Relapsing multiple sclerosis [Unknown]
  - Lymphopenia [Unknown]
  - Pain [Unknown]

NARRATIVE: CASE EVENT DATE: 20210101
